FAERS Safety Report 4351006-2 (Version None)
Quarter: 2004Q2

REPORT INFORMATION
  Report Type: 
  Country: None (occurrence: None)
  Receive Date: 20040427
  Receipt Date: 20040416
  Transmission Date: 20050107
  Serious: Yes (Hospitalization)
  Sender: FDA-Public Use
  Company Number: 2004210020NO

PATIENT
  Age: 56 Year
  Sex: Female

DRUGS (4)
  1. SULFASALAZINE [Suspect]
     Indication: COLITIS ULCERATIVE
     Dosage: 3 G/DAY, ORAL
     Route: 048
     Dates: start: 20030925, end: 20031210
  2. SEROXAT ^NOVO NORDISK^ (PAROXETINE HYDROCHLORIDE) [Concomitant]
  3. CIPROXIN [Concomitant]
  4. METRONIDAZOLE [Concomitant]

REACTIONS (1)
  - POLYNEUROPATHY [None]
